FAERS Safety Report 5877383-9 (Version None)
Quarter: 2008Q3

REPORT INFORMATION
  Report Type: 
  Country: None (occurrence: None)
  Receive Date: 20080908
  Receipt Date: 20080826
  Transmission Date: 20090109
  Serious: Yes (Other)
  Sender: FDA-Public Use
  Company Number: TUK2008A00102

PATIENT
  Age: 70 Year
  Sex: Female

DRUGS (7)
  1. ACTOS [Suspect]
     Dosage: 15 MG ORAL
     Route: 048
     Dates: start: 20080530
  2. ATORVASTATIN CALCIUM [Concomitant]
  3. CO-BENELDOPA (LEVODOPA, BENSERAZIDE HYDROCHLORIDE) [Concomitant]
  4. GLICLAZIDE (GLICLAZIDE) [Concomitant]
  5. MADOPAR (LEVODOPA, BENSERAZIDE HYDROCHLORIDE) [Concomitant]
  6. METFORMIN HCL [Concomitant]
  7. POWERGEL (KETOPROFEN) [Concomitant]

REACTIONS (1)
  - ANGIOEDEMA [None]
